FAERS Safety Report 4305852-1 (Version None)
Quarter: 2004Q1

REPORT INFORMATION
  Report Type: 
  Country: None (occurrence: None)
  Receive Date: 20040225
  Receipt Date: 20040212
  Transmission Date: 20041129
  Serious: Yes (Other)
  Sender: FDA-Public Use
  Company Number: 2004009941

PATIENT
  Age: 24 Year
  Sex: Male
  Weight: 68.0396 kg

DRUGS (1)
  1. BENADRYL [Suspect]
     Indication: NASOPHARYNGITIS
     Dosage: 1 GELCAP (25 MG) ONCE A DAY, ORAL
     Route: 048
     Dates: start: 20040101, end: 20040201

REACTIONS (2)
  - DRUG DEPENDENCE [None]
  - FEELING ABNORMAL [None]
